FAERS Safety Report 8805654 (Version 2)
Quarter: 2012Q4

REPORT INFORMATION
  Report Type: 
  Country: DE (occurrence: DE)
  Receive Date: 20120924
  Receipt Date: 20121114
  Transmission Date: 20130627
  Serious: Yes (Death, Hospitalization, Other)
  Sender: FDA-Public Use
  Company Number: DE-ACTELION-A-CH2012-71771

PATIENT
  Age: 51 Year
  Sex: Male
  Weight: 69.9 kg

DRUGS (8)
  1. TRACLEER [Suspect]
     Indication: DIGITAL ULCER
     Dosage: 125 mg, bid
     Route: 048
     Dates: end: 20121029
  2. TRACLEER [Suspect]
     Dosage: 62.5 mg, bid
     Route: 048
     Dates: start: 20101126
  3. JURNISTA [Concomitant]
     Dosage: UNK
     Dates: start: 20071107
  4. LYRICA [Concomitant]
     Dosage: UNK
     Dates: start: 20061103
  5. OMEPRAZOL [Concomitant]
     Dosage: UNK
     Dates: start: 20071127
  6. RAMIPRIL [Concomitant]
     Dosage: UNK
     Dates: start: 20071127
  7. AMLODIPIN [Concomitant]
     Dosage: UNK
     Dates: start: 20091208
  8. CARVEDILOL [Concomitant]
     Dosage: UNK
     Dates: start: 20120816

REACTIONS (10)
  - Systemic sclerosis [Fatal]
  - Concomitant disease progression [Fatal]
  - Stem cell transplant [Recovered/Resolved]
  - Peripheral blood stem cell apheresis [Recovered/Resolved]
  - Alopecia [Recovered/Resolved with Sequelae]
  - Haematuria [Recovered/Resolved]
  - Urinary tract infection staphylococcal [Recovered/Resolved]
  - Pyelonephritis [Recovered/Resolved with Sequelae]
  - Pulmonary oedema [Recovered/Resolved]
  - Respiratory distress [Recovered/Resolved]
